FAERS Safety Report 24885142 (Version 2)
Quarter: 2025Q1

REPORT INFORMATION
  Report Type: Spontaneous
  Country: US (occurrence: US)
  Receive Date: 20250124
  Receipt Date: 20250325
  Transmission Date: 20250409
  Serious: No
  Sender: PFIZER
  Company Number: US-PFIZER INC-202500015614

PATIENT
  Age: 10 Year
  Sex: Male
  Weight: 24.036 kg

DRUGS (1)
  1. GENOTROPIN [Suspect]
     Active Substance: SOMATROPIN
     Indication: Growth hormone deficiency
     Dosage: 1.3 MG, DAILY (1.4 (MILLIGRAMS) OR 1.2 (MILLIGRAMS) IN ALTERNATING DAYS)

REACTIONS (1)
  - Device chemical property issue [Unknown]
